FAERS Safety Report 14786679 (Version 1)
Quarter: 2018Q2

REPORT INFORMATION
  Report Type: Spontaneous
  Country: US (occurrence: US)
  Receive Date: 20180420
  Receipt Date: 20180420
  Transmission Date: 20180711
  Serious: Yes (Hospitalization)
  Sender: FDA-Public Use
  Company Number: US-ACTELION-A-NJ2018-170810

PATIENT
  Age: 68 Year
  Sex: Female
  Weight: 40.82 kg

DRUGS (2)
  1. FLOLAN [Concomitant]
     Active Substance: EPOPROSTENOL SODIUM
  2. TRACLEER [Suspect]
     Active Substance: BOSENTAN
     Indication: PULMONARY HYPERTENSION
     Dosage: 125 MG, BID
     Route: 048

REACTIONS (4)
  - Sjogren^s syndrome [Recovering/Resolving]
  - Raynaud^s phenomenon [Recovering/Resolving]
  - Scleroderma [Recovering/Resolving]
  - Gangrene [Recovering/Resolving]
